FAERS Safety Report 8004488-9 (Version None)
Quarter: 2011Q4

REPORT INFORMATION
  Report Type: 
  Country: None (occurrence: None)
  Receive Date: 20111223
  Receipt Date: 20111212
  Transmission Date: 20120403
  Serious: Yes (Other)
  Sender: FDA-Public Use
  Company Number: US-JNJFOC-20111205519

PATIENT
  Sex: Female
  Weight: 55.79 kg

DRUGS (2)
  1. CLARITIN [Concomitant]
     Indication: MULTIPLE ALLERGIES
     Route: 065
  2. REMICADE [Suspect]
     Indication: RHEUMATOID ARTHRITIS
     Route: 042
     Dates: start: 20110512

REACTIONS (6)
  - DRUG EFFECT DECREASED [None]
  - FEELING ABNORMAL [None]
  - OEDEMA PERIPHERAL [None]
  - PAIN [None]
  - HEADACHE [None]
  - DYSPHAGIA [None]
